FAERS Safety Report 4462161-8 (Version None)
Quarter: 2004Q3

REPORT INFORMATION
  Report Type: 
  Country: None (occurrence: None)
  Receive Date: 20040927
  Receipt Date: 20040927
  Transmission Date: 20050211
  Serious: Yes (Life-Threatening)
  Sender: FDA-Public Use
  Company Number: None

PATIENT
  Sex: Male

DRUGS (10)
  1. LINEZOLID 600 MG [Suspect]
     Indication: STAPHYLOCOCCAL BACTERAEMIA
     Dosage: 600 MG Q 12 HR INTRAVENOUS
     Route: 042
     Dates: start: 20040326, end: 20040330
  2. VANCOMYCIN [Concomitant]
  3. APAP TAB [Concomitant]
  4. DOXEPIN HCL [Concomitant]
  5. FERROUS SULFATE TAB [Concomitant]
  6. HEPARIN [Concomitant]
  7. MORPHINE [Concomitant]
  8. OXYCODONE AND ACETAMINOPHEN [Concomitant]
  9. PSYLLIUM [Concomitant]
  10. SENNA [Concomitant]

REACTIONS (1)
  - PLATELET COUNT DECREASED [None]
